FAERS Safety Report 8227944-7 (Version None)
Quarter: 2012Q1

REPORT INFORMATION
  Report Type: 
  Country: None (occurrence: None)
  Receive Date: 20120322
  Receipt Date: 20120320
  Transmission Date: 20120608
  Serious: Yes (Other)
  Sender: FDA-Public Use
  Company Number: DE-GILEAD-2011-0047416

PATIENT
  Sex: Male

DRUGS (2)
  1. HEPSERA [Suspect]
     Indication: HEPATITIS B
     Dosage: 10 MG, UNK
     Route: 048
     Dates: start: 20070129, end: 20111129
  2. HEPSERA [Suspect]
     Dosage: 10 MG, EVERY 2 DAYS
     Dates: start: 20111129

REACTIONS (1)
  - RENAL FAILURE [None]
